FAERS Safety Report 14400846 (Version 5)
Quarter: 2018Q4

REPORT INFORMATION
  Report Type: Report from Study
  Country: None (occurrence: US)
  Receive Date: 20180117
  Receipt Date: 20181118
  Transmission Date: 20190204
  Serious: Yes (Hospitalization, Other)
  Sender: FDA-Public Use
  Company Number: US-ABBVIE-18K-163-2224081-00

PATIENT
  Age: 49 Year
  Sex: Female

DRUGS (3)
  1. HUMIRA [Suspect]
     Active Substance: ADALIMUMAB
     Indication: CROHN^S DISEASE
     Route: 058
  2. HUMIRA [Suspect]
     Active Substance: ADALIMUMAB
     Route: 058
     Dates: start: 201806
  3. LUPRON [Concomitant]
     Active Substance: LEUPROLIDE ACETATE
     Indication: PRODUCT USED FOR UNKNOWN INDICATION

REACTIONS (10)
  - Breast cancer female [Unknown]
  - Fatigue [Not Recovered/Not Resolved]
  - Hypophagia [Unknown]
  - Weight decreased [Unknown]
  - Abdominal pain [Unknown]
  - Intestinal obstruction [Unknown]
  - Progesterone receptor assay negative [Unknown]
  - Coronary artery occlusion [Unknown]
  - Malaise [Unknown]
  - Breast cancer stage IV [Unknown]

NARRATIVE: CASE EVENT DATE: 201711
